FAERS Safety Report 16070233 (Version 1)
Quarter: 2019Q1

REPORT INFORMATION
  Report Type: Spontaneous
  Country: US (occurrence: US)
  Receive Date: 20190314
  Receipt Date: 20190314
  Transmission Date: 20190418
  Serious: No
  Sender: FDA-Public Use
  Company Number: US-SHIRE-US201908427

PATIENT
  Sex: Female

DRUGS (1)
  1. XIIDRA [Suspect]
     Active Substance: LIFITEGRAST
     Indication: DRY EYE
     Dosage: UNK
     Route: 047
     Dates: start: 20170415

REACTIONS (5)
  - Pharyngitis streptococcal [Unknown]
  - Sinus disorder [Unknown]
  - Cough [Unknown]
  - Dysphonia [Unknown]
  - Ear infection [Unknown]

NARRATIVE: CASE EVENT DATE: 201707
